FAERS Safety Report 10247784 (Version 1)
Quarter: 2014Q2

REPORT INFORMATION
  Report Type: Spontaneous
  Country: NZ (occurrence: NZ)
  Receive Date: 20140619
  Receipt Date: 20140619
  Transmission Date: 20141212
  Serious: Yes (Other)
  Sender: FDA-Public Use
  Company Number: PHHY2014NZ072419

PATIENT
  Sex: 0

DRUGS (1)
  1. ATOMOXETINE [Suspect]

REACTIONS (3)
  - Suicidal ideation [Unknown]
  - Self injurious behaviour [Recovered/Resolved]
  - Tearfulness [Recovered/Resolved]
